FAERS Safety Report 9019101 (Version 2)
Quarter: 2014Q1

REPORT INFORMATION
  Report Type: Spontaneous
  Country: US (occurrence: US)
  Receive Date: 20130118
  Receipt Date: 20140303
  Transmission Date: 20141002
  Serious: No
  Sender: FDA-Public Use
  Company Number: US-ASTRAZENECA-2012SE07918

PATIENT
  Age: 62 Year
  Sex: Female

DRUGS (2)
  1. NEXIUM [Suspect]
     Route: 048
  2. PULMICORT [Suspect]
     Route: 055

REACTIONS (6)
  - Pneumonia [Unknown]
  - Glossitis [Unknown]
  - Cheilitis [Unknown]
  - Therapeutic response unexpected [Unknown]
  - Cough [Unknown]
  - Stomatitis [Unknown]
